FAERS Safety Report 10632409 (Version 1)
Quarter: 2014Q4

REPORT INFORMATION
  Report Type: Spontaneous
  Country: US (occurrence: US)
  Receive Date: 20141205
  Receipt Date: 20141205
  Transmission Date: 20150529
  Serious: No
  Sender: FDA-Public Use
  Company Number: US-BRISTOL-MYERS SQUIBB COMPANY-21303078

PATIENT
  Sex: Male
  Weight: 95.24 kg

DRUGS (1)
  1. ORENCIA [Suspect]
     Active Substance: ABATACEPT
     Indication: RHEUMATOID ARTHRITIS
     Dosage: LAST DOSE WAS ON 11AUG2014
     Route: 058
     Dates: start: 20140721

REACTIONS (2)
  - Malaise [Unknown]
  - Injection site extravasation [Unknown]
